FAERS Safety Report 9204952 (Version 1)
Quarter: 2013Q2

REPORT INFORMATION
  Report Type: Spontaneous
  Country: US (occurrence: None)
  Receive Date: 20130401
  Receipt Date: 20130401
  Transmission Date: 20140414
  Serious: No
  Sender: FDA-Public Use
  Company Number: None

PATIENT
  Age: 72 Year
  Sex: Male
  Weight: 96 kg

DRUGS (1)
  1. GALANTAMINE [Suspect]
     Indication: DEMENTIA
     Dosage: 4 MG BID PO
     Route: 048
     Dates: start: 20121003, end: 20121107

REACTIONS (2)
  - Bradycardia [None]
  - Atrioventricular block second degree [None]
